FAERS Safety Report 10521924 (Version 2)
Quarter: 2014Q4

REPORT INFORMATION
  Report Type: Spontaneous
  Country: FR (occurrence: None)
  Receive Date: 20141014
  Receipt Date: 20141113
  Transmission Date: 20150528
  Serious: Yes (Other)
  Sender: FDA-Public Use
  Company Number: 2014-20443

PATIENT
  Age: 70 Year
  Sex: Female

DRUGS (2)
  1. EYLEA [Suspect]
     Active Substance: AFLIBERCEPT
     Indication: PRODUCT USED FOR UNKNOWN INDICATION
     Dosage: TOTAL OF THREE INJECTIONS
     Route: 031
     Dates: start: 20140918
  2. EYLEA [Suspect]
     Active Substance: AFLIBERCEPT
     Indication: AGE-RELATED MACULAR DEGENERATION
     Dosage: TOTAL OF THREE INJECTIONS
     Route: 031
     Dates: start: 20140918

REACTIONS (4)
  - Visual acuity reduced [None]
  - Vitreous opacities [None]
  - Vitreous disorder [None]
  - Eye inflammation [None]

NARRATIVE: CASE EVENT DATE: 20140718
